FAERS Safety Report 15942648 (Version 3)
Quarter: 2020Q1

REPORT INFORMATION
  Report Type: Spontaneous
  Country: US (occurrence: US)
  Receive Date: 20190209
  Receipt Date: 20200311
  Transmission Date: 20200409
  Serious: Yes (Other)
  Sender: FDA-Public Use
  Company Number: US-ASTRAZENECA-2018SF66106

PATIENT
  Age: 16504 Day
  Sex: Female
  Weight: 88.5 kg

DRUGS (37)
  1. NEXIUM [Suspect]
     Active Substance: ESOMEPRAZOLE MAGNESIUM
     Indication: GASTROOESOPHAGEAL REFLUX DISEASE
     Dosage: FOR MULTIPLE AND VARIOUS YEARS
     Route: 048
  2. RANITIDINE. [Concomitant]
     Active Substance: RANITIDINE
  3. CLONIDINE. [Concomitant]
     Active Substance: CLONIDINE
  4. FAMOTIDINE. [Concomitant]
     Active Substance: FAMOTIDINE
  5. ONDANSETRON [Concomitant]
     Active Substance: ONDANSETRON
  6. CRESTOR [Concomitant]
     Active Substance: ROSUVASTATIN CALCIUM
  7. NEXIUM [Suspect]
     Active Substance: ESOMEPRAZOLE MAGNESIUM
     Indication: GASTROOESOPHAGEAL REFLUX DISEASE
     Route: 065
     Dates: start: 20120813
  8. METFORMIN [Concomitant]
     Active Substance: METFORMIN HYDROCHLORIDE
  9. NYSTATIN. [Concomitant]
     Active Substance: NYSTATIN
  10. VERAPAMIL [Concomitant]
     Active Substance: VERAPAMIL HYDROCHLORIDE
  11. FUROSEMIDE. [Concomitant]
     Active Substance: FUROSEMIDE
  12. CYMBALTA [Concomitant]
     Active Substance: DULOXETINE HYDROCHLORIDE
     Route: 048
  13. FLUCONAZOLE. [Concomitant]
     Active Substance: FLUCONAZOLE
     Dosage: 150.0MG UNKNOWN
     Route: 048
  14. BENZONATATE. [Concomitant]
     Active Substance: BENZONATATE
  15. CLINDAMYCIN. [Concomitant]
     Active Substance: CLINDAMYCIN
  16. RENVELA [Concomitant]
     Active Substance: SEVELAMER CARBONATE
  17. AMITRIPTYLINE [Concomitant]
     Active Substance: AMITRIPTYLINE
     Dosage: 25.0MG UNKNOWN
     Route: 048
  18. METFORMIN [Concomitant]
     Active Substance: METFORMIN HYDROCHLORIDE
     Route: 048
  19. LOSARTAN. [Concomitant]
     Active Substance: LOSARTAN
  20. ATORVASTATIN [Concomitant]
     Active Substance: ATORVASTATIN
  21. GABAPENTIN. [Concomitant]
     Active Substance: GABAPENTIN
  22. AZITHROMYCIN ANHYDROUS. [Concomitant]
     Active Substance: AZITHROMYCIN ANHYDROUS
  23. NEXIUM [Suspect]
     Active Substance: ESOMEPRAZOLE MAGNESIUM
     Indication: GASTROOESOPHAGEAL REFLUX DISEASE
     Route: 048
  24. OXYBUTYNIN. [Concomitant]
     Active Substance: OXYBUTYNIN CHLORIDE
  25. HYDROCODON [Concomitant]
     Active Substance: HYDROCODONE
  26. LANTUS [Concomitant]
     Active Substance: INSULIN GLARGINE
  27. ISOSORBIDE. [Concomitant]
     Active Substance: ISOSORBIDE
  28. LISINOPRIL. [Concomitant]
     Active Substance: LISINOPRIL
  29. NEXIUM [Suspect]
     Active Substance: ESOMEPRAZOLE MAGNESIUM
     Indication: GASTROOESOPHAGEAL REFLUX DISEASE
     Route: 048
  30. COREG [Concomitant]
     Active Substance: CARVEDILOL
     Dosage: 25.0MG UNKNOWN
     Route: 048
  31. LEVEMIR [Concomitant]
     Active Substance: INSULIN DETEMIR
     Dosage: 100 UNIT/ML
     Route: 058
  32. NOVOLIN N [Concomitant]
     Active Substance: INSULIN HUMAN
  33. NITROSTAT [Concomitant]
     Active Substance: NITROGLYCERIN
  34. ASPIRIN. [Concomitant]
     Active Substance: ASPIRIN
     Dosage: 81.0MG UNKNOWN
     Route: 048
  35. LYRICA [Concomitant]
     Active Substance: PREGABALIN
     Route: 048
  36. BUDEPRION [Concomitant]
     Active Substance: BUPROPION HYDROCHLORIDE
  37. AVELOX [Concomitant]
     Active Substance: MOXIFLOXACIN HYDROCHLORIDE

REACTIONS (5)
  - Renal failure [Unknown]
  - End stage renal disease [Unknown]
  - Chronic kidney disease [Unknown]
  - Renal injury [Unknown]
  - Rebound acid hypersecretion [Unknown]

NARRATIVE: CASE EVENT DATE: 20170327
